FAERS Safety Report 13158831 (Version 1)
Quarter: 2017Q1

REPORT INFORMATION
  Report Type: Report from Study
  Country: US (occurrence: US)
  Receive Date: 20170127
  Receipt Date: 20170127
  Transmission Date: 20170428
  Serious: No
  Sender: FDA-Public Use
  Company Number: US-JNJFOC-20161204757

PATIENT
  Age: 59 Year
  Sex: Female
  Weight: 77.11 kg

DRUGS (6)
  1. BISOPROLOL FUMARATE. [Concomitant]
     Active Substance: BISOPROLOL FUMARATE
     Indication: MITRAL VALVE DISEASE
     Route: 065
  2. STELARA [Suspect]
     Active Substance: USTEKINUMAB
     Indication: PSORIASIS
     Route: 058
     Dates: start: 20161026
  3. STELARA [Suspect]
     Active Substance: USTEKINUMAB
     Indication: PSORIASIS
     Route: 058
     Dates: start: 20161128
  4. HCTZ [Concomitant]
     Active Substance: HYDROCHLOROTHIAZIDE
     Indication: HYPERTENSION
     Dosage: 25/ 25 MG
     Route: 065
  5. MELOXICAM. [Concomitant]
     Active Substance: MELOXICAM
     Indication: ARTHRALGIA
     Route: 065
  6. SPIRONOLACTONE. [Concomitant]
     Active Substance: SPIRONOLACTONE
     Indication: HYPERTENSION
     Dosage: 25/25 MG
     Route: 065

REACTIONS (8)
  - Chest pain [Unknown]
  - Nasopharyngitis [Unknown]
  - Arthropathy [Not Recovered/Not Resolved]
  - Drug dose omission [Unknown]
  - Arthralgia [Not Recovered/Not Resolved]
  - Rash [Not Recovered/Not Resolved]
  - Myalgia [Not Recovered/Not Resolved]
  - Dyspnoea [Unknown]

NARRATIVE: CASE EVENT DATE: 2016
